FAERS Safety Report 26112670 (Version 1)
Quarter: 2025Q4

REPORT INFORMATION
  Report Type: Spontaneous
  Country: US (occurrence: US)
  Receive Date: 20251202
  Receipt Date: 20251202
  Transmission Date: 20260118
  Serious: No
  Sender: ROCHE
  Company Number: US-ROCHE-10000440494

PATIENT
  Sex: Female

DRUGS (1)
  1. XOLAIR [Suspect]
     Active Substance: OMALIZUMAB
     Indication: Idiopathic urticaria
     Dosage: 300 MG, Q4W, STRENGTH: 300MG/2ML
     Route: 058
     Dates: start: 202509

REACTIONS (3)
  - Blood immunoglobulin E increased [Unknown]
  - Off label use [Unknown]
  - Therapeutic response decreased [Unknown]
